FAERS Safety Report 7025443-1 (Version None)
Quarter: 2010Q4

REPORT INFORMATION
  Report Type: 
  Country: None (occurrence: None)
  Receive Date: 20101001
  Receipt Date: 20100928
  Transmission Date: 20110411
  Serious: Yes (Hospitalization, Other)
  Sender: FDA-Public Use
  Company Number: PHHO2010NL10082

PATIENT
  Sex: Female
  Weight: 65 kg

DRUGS (1)
  1. CGS 20267 T30748+TAB [Suspect]
     Indication: BREAST CANCER
     Dosage: 2.5 MG, QD
     Route: 048
     Dates: start: 20081115, end: 20090428

REACTIONS (2)
  - AORTIC THROMBOSIS [None]
  - PERIPHERAL ISCHAEMIA [None]
